FAERS Safety Report 18979594 (Version 1)
Quarter: 2021Q1

REPORT INFORMATION
  Report Type: Spontaneous
  Country: US (occurrence: US)
  Receive Date: 20210308
  Receipt Date: 20210308
  Transmission Date: 20210420
  Serious: Yes (Hospitalization)
  Sender: FDA-Public Use
  Company Number: US-ROCHE-2776939

PATIENT
  Sex: Female

DRUGS (11)
  1. MYCOPHENOLATE [Concomitant]
     Active Substance: MYCOPHENOLIC ACID
  2. CORTISONE [Concomitant]
     Active Substance: CORTISONE
  3. RECLAST [Concomitant]
     Active Substance: ZOLEDRONIC ACID
  4. CELLCEPT [Suspect]
     Active Substance: MYCOPHENOLATE MOFETIL\MYCOPHENOLATE MOFETIL HYDROCHLORIDE
     Indication: SCLERODERMA
     Route: 065
  5. TYVASO [Suspect]
     Active Substance: TREPROSTINIL
     Dosage: (15 BREATHS)
  6. LISINOPRIL. [Concomitant]
     Active Substance: LISINOPRIL
  7. CLONIDINE. [Concomitant]
     Active Substance: CLONIDINE
  8. TYVASO [Suspect]
     Active Substance: TREPROSTINIL
     Indication: PULMONARY ARTERIAL HYPERTENSION
     Dosage: (3 BREATHS)
     Dates: start: 2018
  9. TYVASO [Suspect]
     Active Substance: TREPROSTINIL
  10. TYVASO [Suspect]
     Active Substance: TREPROSTINIL
  11. TYVASO [Suspect]
     Active Substance: TREPROSTINIL
     Dosage: (9 BREATHS)

REACTIONS (19)
  - Oxygen saturation decreased [Not Recovered/Not Resolved]
  - Vomiting [Unknown]
  - Dizziness [Not Recovered/Not Resolved]
  - Extra dose administered [Unknown]
  - Eye infection [Unknown]
  - Gastrointestinal mucosal disorder [Not Recovered/Not Resolved]
  - Off label use [Unknown]
  - Blood pressure abnormal [Not Recovered/Not Resolved]
  - Cough [Not Recovered/Not Resolved]
  - Musculoskeletal chest pain [Unknown]
  - Rhinovirus infection [Unknown]
  - Nausea [Recovered/Resolved]
  - Alopecia [Not Recovered/Not Resolved]
  - Headache [Not Recovered/Not Resolved]
  - Ligament rupture [Unknown]
  - Abnormal dreams [Not Recovered/Not Resolved]
  - Intentional product use issue [Unknown]
  - Hypersomnia [Not Recovered/Not Resolved]
  - Product dose omission issue [Unknown]

NARRATIVE: CASE EVENT DATE: 2019
